FAERS Safety Report 7462466-2 (Version None)
Quarter: 2011Q2

REPORT INFORMATION
  Report Type: 
  Country: None (occurrence: None)
  Receive Date: 20110506
  Receipt Date: 20110429
  Transmission Date: 20111010
  Serious: Yes (Other)
  Sender: FDA-Public Use
  Company Number: US-BAYER-2011-032343

PATIENT
  Age: 54 Year
  Sex: Female

DRUGS (4)
  1. INTERFERON BETA-1B [Suspect]
     Dosage: UNK
     Dates: start: 20090506, end: 20091111
  2. INTERFERON BETA-1B [Suspect]
     Indication: MULTIPLE SCLEROSIS
     Dosage: UNK
     Dates: start: 20080713, end: 20090106
  3. INTERFERON BETA-1B [Suspect]
     Dosage: 8 MIU, QOD
     Route: 058
     Dates: start: 20101118
  4. INTERFERON BETA-1B [Suspect]
     Dosage: UNK
     Dates: start: 20091130, end: 20101109

REACTIONS (3)
  - NAUSEA [None]
  - VOMITING [None]
  - CHOLELITHIASIS [None]
